FAERS Safety Report 6375998-5 (Version None)
Quarter: 2009Q3

REPORT INFORMATION
  Report Type: 
  Country: None (occurrence: None)
  Receive Date: 20090921
  Receipt Date: 20090907
  Transmission Date: 20100115
  Serious: Yes (Hospitalization)
  Sender: FDA-Public Use
  Company Number: 2009AL005874

PATIENT
  Age: 83 Year
  Sex: Female

DRUGS (17)
  1. FLUOXETINE [Suspect]
     Indication: DEPRESSION
     Dosage: 40 MG; QD; PO
     Route: 048
     Dates: end: 20090302
  2. AMLODIPINE [Concomitant]
  3. FUROSEMIDE [Concomitant]
  4. LORATADINE [Concomitant]
  5. PERINDOPRIL [Concomitant]
  6. SIMVASTATIN [Concomitant]
  7. AQUEOUS CREAM [Concomitant]
  8. ACETYLSALICYLIC ACID [Concomitant]
  9. CO-CODAMOL [Concomitant]
  10. DIPROBASE CREAM [Concomitant]
  11. FLUOXETINE [Concomitant]
  12. LACTULOSE [Concomitant]
  13. PROPRANOLOL [Concomitant]
  14. TEMAZEPAM [Concomitant]
  15. TRIMETHOPRIM [Concomitant]
  16. SENNA [Concomitant]
  17. PERINDOPRIL [Concomitant]

REACTIONS (1)
  - GASTROINTESTINAL HAEMORRHAGE [None]
